FAERS Safety Report 19816175 (Version 1)
Quarter: 2021Q3

REPORT INFORMATION
  Report Type: Spontaneous
  Country: GB (occurrence: GB)
  Receive Date: 20210910
  Receipt Date: 20210910
  Transmission Date: 20211014
  Serious: Yes (Other)
  Sender: FDA-Public Use
  Company Number: GB-TEVA-2021-GB-1951330

PATIENT
  Age: 41 Year
  Sex: Female
  Weight: 65 kg

DRUGS (5)
  1. CLARITHROMYCIN CITRATE [Suspect]
     Active Substance: CLARITHROMYCIN CITRATE
     Indication: HELICOBACTER INFECTION
  2. CLARITHROMYCIN CITRATE [Suspect]
     Active Substance: CLARITHROMYCIN CITRATE
     Indication: ILL-DEFINED DISORDER
     Dosage: 250
     Route: 048
     Dates: start: 20210901, end: 20210904
  3. METRONIDAZOLE BENZOATE [Suspect]
     Active Substance: METRONIDAZOLE BENZOATE
     Indication: ILL-DEFINED DISORDER
     Dosage: 400
     Route: 048
     Dates: start: 20210901, end: 20210904
  4. METRONIDAZOLE BENZOATE [Suspect]
     Active Substance: METRONIDAZOLE BENZOATE
     Indication: HELICOBACTER INFECTION
  5. LEVOTHYROXINE SODIQUE [Concomitant]
     Active Substance: LEVOTHYROXINE SODIUM
     Indication: ILL-DEFINED DISORDER

REACTIONS (1)
  - Asthenia [Recovering/Resolving]

NARRATIVE: CASE EVENT DATE: 20210901
